FAERS Safety Report 23486769 (Version 3)
Quarter: 2024Q1

REPORT INFORMATION
  Report Type: Spontaneous
  Country: US (occurrence: US)
  Receive Date: 20240206
  Receipt Date: 20240301
  Transmission Date: 20240410
  Serious: Yes (Other)
  Sender: FDA-Public Use
  Company Number: US-PFIZER INC-202101707950

PATIENT
  Age: 70 Year
  Sex: Female

DRUGS (8)
  1. PROCARDIA XL [Suspect]
     Active Substance: NIFEDIPINE
     Indication: Hypertension
     Dosage: 60 MG
  2. PROCARDIA XL [Suspect]
     Active Substance: NIFEDIPINE
     Indication: Dyspnoea
     Dosage: 30 MG
  3. PROCARDIA XL [Suspect]
     Active Substance: NIFEDIPINE
     Indication: Chest pain
     Dosage: 90 MG, 1X/DAY
  4. PROCARDIA XL [Suspect]
     Active Substance: NIFEDIPINE
     Indication: Cardiac valve disease
  5. CALCIUM [Concomitant]
     Active Substance: CALCIUM
     Dosage: 12-15MG
  6. HYDROCHLOROTHIAZIDE [Concomitant]
     Active Substance: HYDROCHLOROTHIAZIDE
     Indication: Hypertension
     Dosage: UNK
  7. VITAMIN C [Concomitant]
     Active Substance: ASCORBIC ACID
     Indication: Immune system disorder
     Dosage: UNK
  8. VITAMIN D3 [Concomitant]
     Active Substance: CHOLECALCIFEROL
     Dosage: UNK

REACTIONS (1)
  - Drug dependence [Unknown]
